FAERS Safety Report 9184180 (Version 1)
Quarter: 2013Q1

REPORT INFORMATION
  Report Type: Spontaneous
  Country: US (occurrence: US)
  Receive Date: 20130322
  Receipt Date: 20130322
  Transmission Date: 20140127
  Serious: No
  Sender: FDA-Public Use
  Company Number: US-BRISTOL-MYERS SQUIBB COMPANY-16454829

PATIENT
  Age: 75 Year
  Sex: Female

DRUGS (6)
  1. ERBITUX [Suspect]
     Dosage: SECOND INF ON 12MAR12
     Dates: start: 20120305
  2. LEVOTHYROXINE [Concomitant]
  3. LEXAPRO [Concomitant]
  4. SIMVASTATIN [Concomitant]
  5. VICODIN [Concomitant]
  6. XANAX [Concomitant]

REACTIONS (1)
  - Skin exfoliation [Recovering/Resolving]
